FAERS Safety Report 9514573 (Version 1)
Quarter: 2013Q1

REPORT INFORMATION
  Report Type: Spontaneous
  Country: US (occurrence: None)
  Receive Date: 20130305
  Receipt Date: 20130305
  Transmission Date: 20140127
  Serious: Yes (Death)
  Sender: FDA-Public Use
  Company Number: 163-21880-12123012

PATIENT
  Age: 89 Year
  Sex: Male
  Weight: 54.43 kg

DRUGS (3)
  1. REVLIMID [Suspect]
     Indication: PLASMA CELL MYELOMA
     Dosage: 25 MG, MONDAY, WEDNESDAY, FRIDAY, PO
     Route: 048
     Dates: start: 200912
  2. REVLIMID [Suspect]
     Indication: MYELODYSPLASTIC SYNDROME
     Dosage: 25 MG, MONDAY, WEDNESDAY, FRIDAY, PO
     Route: 048
     Dates: start: 200912
  3. DEXAMETHASONE ( DEXAMETHASONE) (UNKNOWN) [Concomitant]

REACTIONS (2)
  - Respiratory failure [None]
  - Cough [None]
